FAERS Safety Report 12210969 (Version 1)
Quarter: 2016Q1

REPORT INFORMATION
  Report Type: Spontaneous
  Country: US (occurrence: None)
  Receive Date: 20160324
  Receipt Date: 20160324
  Transmission Date: 20160526
  Serious: No
  Sender: FDA-Public Use
  Company Number: None

PATIENT
  Sex: Female

DRUGS (1)
  1. IMATINIB MESYLATE 400 MG RANBAXY [Suspect]
     Active Substance: IMATINIB MESYLATE
     Route: 048
     Dates: start: 20151231

REACTIONS (1)
  - Conjunctival haemorrhage [None]
